FAERS Safety Report 22319860 (Version 1)
Quarter: 2023Q2

REPORT INFORMATION
  Report Type: Spontaneous
  Country: US (occurrence: US)
  Receive Date: 20230515
  Receipt Date: 20230515
  Transmission Date: 20230722
  Serious: Yes (Other)
  Sender: FDA-Public Use
  Company Number: US-TEVA-2023-US-2887430

PATIENT
  Age: 57 Year
  Sex: Male

DRUGS (1)
  1. PROAIR DIGIHALER [Suspect]
     Active Substance: ALBUTEROL SULFATE
     Indication: Asthma
     Dosage: STRENGTH: 117 MCG
     Route: 065
     Dates: start: 20230420

REACTIONS (6)
  - Choking [Unknown]
  - Chest discomfort [Unknown]
  - Dyspnoea [Unknown]
  - Drug ineffective [Unknown]
  - Product taste abnormal [Unknown]
  - Product quality issue [Unknown]

NARRATIVE: CASE EVENT DATE: 20230420
